FAERS Safety Report 8422987 (Version 4)
Quarter: 2014Q3

REPORT INFORMATION
  Report Type: Spontaneous
  Country: DE (occurrence: DE)
  Receive Date: 20120223
  Receipt Date: 20140807
  Transmission Date: 20150326
  Serious: Yes (Life-Threatening, Hospitalization, Other)
  Sender: FDA-Public Use
  Company Number: DE-ALEXION-A201200255

PATIENT
  Age: 10 Month
  Sex: Male
  Weight: 13.3 kg

DRUGS (26)
  1. SOLIRIS [Suspect]
     Active Substance: ECULIZUMAB
     Indication: HAEMOLYTIC URAEMIC SYNDROME
     Dosage: UNK
     Route: 042
     Dates: start: 20111101
  2. VITAMIN D [Concomitant]
     Active Substance: CHOLECALCIFEROL
     Dosage: 500 IE
     Route: 048
     Dates: start: 20101217
  3. SOLIRIS [Suspect]
     Active Substance: ECULIZUMAB
     Dosage: 300 MG, Q2W
     Route: 042
     Dates: start: 20120203, end: 20120302
  4. ERYTHROPOIETIN [Concomitant]
     Active Substance: ERYTHROPOIETIN
     Indication: ANAEMIA
     Dosage: 2000 IE
     Route: 042
     Dates: start: 20120124, end: 20120203
  5. SOLIRIS [Suspect]
     Active Substance: ECULIZUMAB
     Dosage: 600 MG, Q2W
     Route: 042
     Dates: start: 20120313, end: 20130325
  6. METOPROLOL [Concomitant]
     Active Substance: METOPROLOL
     Indication: HYPERTENSION
     Dosage: 23.75 MG, QD
     Route: 048
     Dates: start: 20111201
  7. SOLIRIS [Suspect]
     Active Substance: ECULIZUMAB
     Indication: OFF LABEL USE
     Dosage: 600 MG, QW
     Route: 042
     Dates: start: 20111115, end: 20111122
  8. LOSARTAN [Concomitant]
     Active Substance: LOSARTAN
     Indication: HYPERTENSION
     Dosage: 5 MG, BID
     Route: 048
     Dates: start: 20111201
  9. RAMIPRIL. [Concomitant]
     Active Substance: RAMIPRIL
     Dosage: 2.5 MG, QD
     Dates: start: 20130325
  10. SODIUM BICARBONATE. [Concomitant]
     Active Substance: SODIUM BICARBONATE
     Dosage: 3X10ML
     Dates: start: 20120101
  11. PIPERACILLIN AND TAZOBACTAM [Concomitant]
     Active Substance: PIPERACILLIN SODIUM\TAZOBACTAM SODIUM
     Dosage: UNK
     Route: 042
     Dates: start: 20130323, end: 20130327
  12. AMLODIPINE [Concomitant]
     Active Substance: AMLODIPINE BESYLATE
     Dosage: 2.5 MG, QD
  13. SOLIRIS [Suspect]
     Active Substance: ECULIZUMAB
     Dosage: 600 MG, SINGLE
     Route: 042
     Dates: start: 20120127, end: 20120127
  14. SOLIRIS [Suspect]
     Active Substance: ECULIZUMAB
     Dosage: 600 MG, QW
     Route: 042
     Dates: start: 20130325
  15. FERRLECIT [Concomitant]
     Active Substance: SODIUM FERRIC GLUCONATE COMPLEX
     Indication: ANAEMIA
     Dosage: 30 MG, UNK
     Route: 042
     Dates: start: 20120124, end: 20120203
  16. SODIUM BICARBONATE. [Concomitant]
     Active Substance: SODIUM BICARBONATE
     Dosage: 3 DF, 3X4 ML
  17. INFLUENZA VACCINE [Suspect]
     Active Substance: INFLUENZA VIRUS VACCINE
     Dosage: UNK
     Dates: start: 201301
  18. SOLIRIS [Suspect]
     Active Substance: ECULIZUMAB
     Dosage: 300 MG, QW
     Route: 042
     Dates: start: 20120302, end: 20130313
  19. LEVETIRACETAM. [Concomitant]
     Active Substance: LEVETIRACETAM
     Indication: CONVULSION
     Dosage: 150 MG, BID
     Route: 048
     Dates: start: 20111202
  20. VARITECT [Concomitant]
     Indication: EXPOSURE TO COMMUNICABLE DISEASE
     Dosage: 25 IE/KG 1 HOUR INFUSION
     Route: 042
     Dates: start: 20120203, end: 20120203
  21. LEVETIRACETAM. [Concomitant]
     Active Substance: LEVETIRACETAM
     Dosage: 250 MG, BID
  22. NIFEDIPINE. [Concomitant]
     Active Substance: NIFEDIPINE
     Indication: HYPERTENSION
     Dosage: 6X8MG
     Route: 048
     Dates: start: 20111201
  23. RAMIPRIL. [Concomitant]
     Active Substance: RAMIPRIL
     Indication: HYPERTENSION
     Dosage: 1.25 MG, QD
     Route: 048
     Dates: start: 20111201, end: 20130313
  24. LOSARTAN [Concomitant]
     Active Substance: LOSARTAN
     Dosage: 12.5 MG, QD
     Dates: end: 20130313
  25. DARBEPOETIN ALFA [Concomitant]
     Active Substance: DARBEPOETIN ALFA
     Dosage: UNK, Q2W
  26. MEASLES, MUMPS AND RUBELLA VACCINE [Concomitant]
     Active Substance: MEASLES-MUMPS-RUBELLA VIRUS VACCINE
     Dosage: UNK
     Dates: start: 201212

REACTIONS (15)
  - Pancreatitis [Unknown]
  - Drug ineffective [Not Recovered/Not Resolved]
  - Convulsion [Unknown]
  - Intentional product misuse [Not Recovered/Not Resolved]
  - Cardiac arrest [Recovering/Resolving]
  - Glomerular filtration rate decreased [Unknown]
  - Thrombotic microangiopathy [Unknown]
  - Condition aggravated [Unknown]
  - Generalised tonic-clonic seizure [Recovered/Resolved]
  - Malignant hypertension [Not Recovered/Not Resolved]
  - Hypertension [Unknown]
  - Blood pressure increased [Recovering/Resolving]
  - Upper respiratory tract infection [Unknown]
  - Exposure to communicable disease [Recovering/Resolving]
  - Infection [Unknown]

NARRATIVE: CASE EVENT DATE: 201111
